FAERS Safety Report 4952327-2 (Version None)
Quarter: 2006Q1

REPORT INFORMATION
  Report Type: 
  Country: None (occurrence: None)
  Receive Date: 20060131
  Receipt Date: 20041130
  Transmission Date: 20060701
  Serious: Yes (Other)
  Sender: FDA-Public Use
  Company Number: WAES 0411USA04213

PATIENT
  Age: 61 Year
  Sex: Male
  Weight: 101.6057 kg

DRUGS (7)
  1. INVANZ [Suspect]
     Indication: STREPTOCOCCAL INFECTION
     Dosage: 1 GM/DAILY/IV
     Route: 042
     Dates: start: 20041113, end: 20041113
  2. ZOSYN [Suspect]
     Dosage: 3.375 GM/Q6H
     Dates: start: 20041024
  3. AMARYL [Concomitant]
  4. NIFEDIPINE [Concomitant]
  5. PROTONIX [Concomitant]
  6. LISINOPRIL [Concomitant]
  7. METFORMIN [Concomitant]

REACTIONS (1)
  - RASH GENERALISED [None]
